FAERS Safety Report 5515093-8 (Version None)
Quarter: 2007Q4

REPORT INFORMATION
  Report Type: 
  Country: None (occurrence: None)
  Receive Date: 20071113
  Receipt Date: 20070112
  Transmission Date: 20080405
  Serious: Yes (Hospitalization)
  Sender: FDA-Public Use
  Company Number: A0632855A

PATIENT
  Age: 49 Year
  Sex: Female

DRUGS (4)
  1. COREG [Suspect]
     Indication: TACHYCARDIA
     Route: 048
     Dates: start: 20061208
  2. NOVOLIN 50/50 [Concomitant]
  3. AMPICILLIN [Concomitant]
  4. CARDIZEM [Concomitant]

REACTIONS (1)
  - HYPOGLYCAEMIA [None]
